FAERS Safety Report 11673151 (Version 1)
Quarter: 2015Q4

REPORT INFORMATION
  Report Type: Spontaneous
  Country: US (occurrence: None)
  Receive Date: 20151026
  Receipt Date: 20151026
  Transmission Date: 20160304
  Serious: Yes (Hospitalization)
  Sender: FDA-Public Use
  Company Number: None

PATIENT
  Age: 65 Year
  Sex: Male
  Weight: 78 kg

DRUGS (3)
  1. PRAZOSIN [Suspect]
     Active Substance: PRAZOSIN
     Indication: POST-TRAUMATIC STRESS DISORDER
     Route: 048
     Dates: start: 20130809, end: 20130813
  2. MIRTAZAPINE. [Suspect]
     Active Substance: MIRTAZAPINE
     Indication: INSOMNIA
     Route: 048
     Dates: start: 20130812, end: 20130813
  3. MIRTAZAPINE. [Suspect]
     Active Substance: MIRTAZAPINE
     Indication: DEPRESSION
     Route: 048
     Dates: start: 20130812, end: 20130813

REACTIONS (4)
  - Lipase increased [None]
  - Amylase increased [None]
  - Pancreatitis [None]
  - Abdominal pain upper [None]

NARRATIVE: CASE EVENT DATE: 20130814
